FAERS Safety Report 19561470 (Version 1)
Quarter: 2021Q3

REPORT INFORMATION
  Report Type: Spontaneous
  Country: US (occurrence: US)
  Receive Date: 20210716
  Receipt Date: 20210716
  Transmission Date: 20211014
  Serious: No
  Sender: FDA-Public Use
  Company Number: US-UNITED THERAPEUTICS-UNT-2021-013167

PATIENT
  Sex: Female
  Weight: 68.03 kg

DRUGS (3)
  1. REMODULIN [Suspect]
     Active Substance: TREPROSTINIL
     Dosage: 0.028 ?G/KG, CONTINUING
     Route: 058
  2. REMODULIN [Suspect]
     Active Substance: TREPROSTINIL
     Indication: PULMONARY ARTERIAL HYPERTENSION
     Dosage: UNK, CONTINUING
     Route: 058
     Dates: start: 20210510
  3. OPSUMIT [Concomitant]
     Active Substance: MACITENTAN
     Indication: PRODUCT USED FOR UNKNOWN INDICATION
     Dosage: UNK
     Route: 065

REACTIONS (4)
  - Infusion site erythema [Unknown]
  - Infusion site pruritus [Unknown]
  - Device infusion issue [Unknown]
  - Infusion site swelling [Unknown]

NARRATIVE: CASE EVENT DATE: 2021
